FAERS Safety Report 16490471 (Version 3)
Quarter: 2020Q1

REPORT INFORMATION
  Report Type: Spontaneous
  Country: CA (occurrence: CA)
  Receive Date: 20190628
  Receipt Date: 20200213
  Transmission Date: 20200409
  Serious: Yes (Other)
  Sender: FDA-Public Use
  Company Number: CA-AUROBINDO-AUR-APL-2019-035593

PATIENT
  Age: 75 Year
  Sex: Male

DRUGS (3)
  1. CTP [Suspect]
     Active Substance: CITALOPRAM HYDROBROMIDE
     Indication: ANTIDEPRESSANT THERAPY
     Dosage: 10 MILLIGRAM
     Route: 065
  2. DULOXETINE MYLAN [Suspect]
     Active Substance: DULOXETINE
     Indication: PRODUCT USED FOR UNKNOWN INDICATION
     Dosage: UNK
     Route: 065
  3. DULOXETINE. [Suspect]
     Active Substance: DULOXETINE
     Indication: ANTIDEPRESSANT THERAPY
     Dosage: 15 MILLIGRAM
     Route: 065

REACTIONS (1)
  - Interstitial lung disease [Not Recovered/Not Resolved]
